FAERS Safety Report 25887541 (Version 3)
Quarter: 2025Q4

REPORT INFORMATION
  Report Type: Spontaneous
  Country: EU (occurrence: EU)
  Receive Date: 20251007
  Receipt Date: 20251104
  Transmission Date: 20260117
  Serious: Yes (Hospitalization)
  Sender: SANDOZ
  Company Number: None

PATIENT
  Age: 20 Year
  Sex: Female
  Weight: 50 kg

DRUGS (10)
  1. BACTRIM [Suspect]
     Active Substance: SULFAMETHOXAZOLE\TRIMETHOPRIM
     Indication: Opportunistic infection prophylaxis
     Dosage: 3 DF, QW
     Route: 048
  2. COSMEGEN [Suspect]
     Active Substance: DACTINOMYCIN
     Indication: Rhabdomyosarcoma
     Dosage: 2 MG, 1 {TOTAL}
     Route: 042
     Dates: start: 20240313, end: 20240313
  3. DOXORUBICIN HYDROCHLORIDE [Suspect]
     Active Substance: DOXORUBICIN HYDROCHLORIDE
     Indication: Rhabdomyosarcoma
     Dosage: 92 MG (DOXORUBICINE ACCORD)
     Route: 042
     Dates: start: 20240313, end: 20240314
  4. LENOGRASTIM [Suspect]
     Active Substance: LENOGRASTIM
     Indication: Colony stimulating factor therapy
     Dosage: 34 IU, QD
     Route: 058
  5. IFOSFAMIDE [Suspect]
     Active Substance: IFOSFAMIDE
     Indication: Rhabdomyosarcoma
     Dosage: 9.2 G (POWDER FOR PARENTERAL USE)
     Route: 042
     Dates: start: 20240313, end: 20240314
  6. MESNA [Suspect]
     Active Substance: MESNA
     Indication: Chemotherapy side effect prophylaxis
     Dosage: 5800 MG, 100 MG/ML
     Route: 042
     Dates: start: 20240313, end: 20240314
  7. ACETAMINOPHEN [Suspect]
     Active Substance: ACETAMINOPHEN
     Indication: Pain
     Dosage: 1 G, Q8H
     Route: 048
  8. VOGALENE [Suspect]
     Active Substance: METOPIMAZINE
     Indication: Prophylaxis of nausea and vomiting
     Dosage: 2 DF
     Route: 048
  9. ONDANSETRON [Suspect]
     Active Substance: ONDANSETRON
     Indication: Prophylaxis of nausea and vomiting
     Dosage: 3 DF
     Route: 048
  10. POLYETHYLENE GLYCOL 4000 [Concomitant]
     Active Substance: POLYETHYLENE GLYCOL 4000
     Indication: Product used for unknown indication
     Dosage: UNK
     Route: 065

REACTIONS (1)
  - Pancreatitis acute [Recovered/Resolved]

NARRATIVE: CASE EVENT DATE: 20240323
